FAERS Safety Report 8884245 (Version 1)
Quarter: 2012Q4

REPORT INFORMATION
  Report Type: Report from Study
  Country: CN (occurrence: CN)
  Receive Date: 20121102
  Receipt Date: 20121102
  Transmission Date: 20130627
  Serious: Yes (Hospitalization, Other)
  Sender: FDA-Public Use
  Company Number: CN-ROCHE-1150445

PATIENT
  Sex: Male

DRUGS (3)
  1. MYCOPHENOLATE MOFETIL [Suspect]
     Indication: RENAL TRANSPLANT
     Route: 048
     Dates: start: 200407
  2. TACROLIMUS [Suspect]
     Indication: RENAL TRANSPLANT
     Dosage: 1mg in the morning, 0.5mg at night
     Route: 048
     Dates: start: 200407
  3. HORMONE NOS [Concomitant]
     Indication: RENAL TRANSPLANT
     Route: 048
     Dates: start: 200407

REACTIONS (3)
  - Cerebrovascular accident [Recovered/Resolved with Sequelae]
  - Blood cholesterol increased [Recovering/Resolving]
  - Hypoaesthesia [Unknown]
